FAERS Safety Report 9562920 (Version 1)
Quarter: 2013Q3

REPORT INFORMATION
  Report Type: Spontaneous
  Country: ES (occurrence: ES)
  Receive Date: 20130927
  Receipt Date: 20130927
  Transmission Date: 20140515
  Serious: Yes (Hospitalization)
  Sender: FDA-Public Use
  Company Number: ES-MYLANLABS-2013S1020889

PATIENT
  Age: 59 Year
  Sex: Female

DRUGS (1)
  1. LEVOTHYROXINE SODIUM [Suspect]
     Dosage: 4-WEEK WITHDRAWAL PRIOR TO RADIOABLATION OF THYROID
     Route: 065

REACTIONS (4)
  - Hypothyroidism [Recovering/Resolving]
  - Gastrointestinal malformation [Recovering/Resolving]
  - Ileus paralytic [Recovering/Resolving]
  - Hernia [Recovering/Resolving]
